FAERS Safety Report 24303104 (Version 1)
Quarter: 2024Q3

REPORT INFORMATION
  Report Type: Report from Study
  Country: US (occurrence: US)
  Receive Date: 20240910
  Receipt Date: 20240910
  Transmission Date: 20241017
  Serious: No
  Sender: SUNOVION
  Company Number: US-SUMITOMO PHARMA SWITZERLAND GMBH-2024SPA001716

PATIENT

DRUGS (3)
  1. ORGOVYX [Suspect]
     Active Substance: RELUGOLIX
     Indication: Prostate cancer
     Dosage: 360 MG
     Route: 048
     Dates: start: 20240603, end: 20240603
  2. ORGOVYX [Suspect]
     Active Substance: RELUGOLIX
     Dosage: 120 MG, QD
     Route: 048
     Dates: start: 20240604
  3. ERLEADA [Concomitant]
     Active Substance: APALUTAMIDE
     Dosage: UNK
     Route: 065

REACTIONS (4)
  - Dry skin [Unknown]
  - Abdominal distension [Unknown]
  - Gastrointestinal motility disorder [Unknown]
  - Fatigue [Unknown]
